FAERS Safety Report 8264409-0 (Version None)
Quarter: 2012Q2

REPORT INFORMATION
  Report Type: 
  Country: None (occurrence: None)
  Receive Date: 20120406
  Receipt Date: 20120401
  Transmission Date: 20120825
  Serious: Yes (Hospitalization)
  Sender: FDA-Public Use
  Company Number: PHHY2012MX028546

PATIENT
  Sex: Female

DRUGS (2)
  1. DIOVAN HCT [Suspect]
     Indication: HYPERTENSION
     Dosage: 1 DF, DAILY (160 MG VALS AND 12.5 MG HYDRO)
     Dates: start: 20120303
  2. EXFORGE [Suspect]
     Dosage: 1 DF DAILY
     Dates: start: 20120303

REACTIONS (1)
  - CHONDROPATHY [None]
